FAERS Safety Report 9430229 (Version 1)
Quarter: 2013Q3

REPORT INFORMATION
  Report Type: Spontaneous
  Country: KR (occurrence: KR)
  Receive Date: 20130730
  Receipt Date: 20130730
  Transmission Date: 20140515
  Serious: Yes (Other)
  Sender: FDA-Public Use
  Company Number: KR-BAXTER-2013BAX029093

PATIENT
  Age: 20 Year
  Sex: Male

DRUGS (7)
  1. ENDOXAN INJ 500MG [Suspect]
     Indication: BURKITT^S LYMPHOMA
     Route: 065
  2. VINCRISTINE [Suspect]
     Indication: BURKITT^S LYMPHOMA
     Route: 065
  3. DOXORUBICIN [Suspect]
     Indication: BURKITT^S LYMPHOMA
     Route: 065
  4. DEXAMETHASONE [Suspect]
     Indication: BURKITT^S LYMPHOMA
     Route: 065
  5. MA [Suspect]
     Indication: BURKITT^S LYMPHOMA
     Route: 065
  6. METHOTREXATE [Suspect]
     Indication: BURKITT^S LYMPHOMA
     Route: 065
  7. CYTARABINE [Suspect]
     Indication: BURKITT^S LYMPHOMA
     Route: 065

REACTIONS (2)
  - Second primary malignancy [Recovered/Resolved]
  - Ewing^s sarcoma [Recovered/Resolved]
